FAERS Safety Report 19799317 (Version 1)
Quarter: 2021Q3

REPORT INFORMATION
  Report Type: Spontaneous
  Country: PL (occurrence: PL)
  Receive Date: 20210907
  Receipt Date: 20210907
  Transmission Date: 20211014
  Serious: Yes (Other)
  Sender: FDA-Public Use
  Company Number: PL-MYLANLABS-2021M1058176

PATIENT
  Age: 68 Year
  Sex: Female

DRUGS (5)
  1. DULOXETINE. [Interacting]
     Active Substance: DULOXETINE
     Indication: DEPRESSION
     Dosage: 60 MILLIGRAM, QD
  2. ALPRAZOLAM. [Suspect]
     Active Substance: ALPRAZOLAM
     Indication: DEPRESSION
     Dosage: 2 X 0.5MG
  3. CELECOXIB. [Concomitant]
     Active Substance: CELECOXIB
     Indication: ARTHRITIS
     Dosage: 400 MILLIGRAM, QD
  4. CIPROFLOXACIN. [Concomitant]
     Active Substance: CIPROFLOXACIN
     Indication: ARTHRITIS
     Dosage: 1000 MILLIGRAM, QD
     Route: 048
  5. METOPROLOL. [Concomitant]
     Active Substance: METOPROLOL
     Dosage: 100 MILLIGRAM, QD

REACTIONS (6)
  - Eye pain [Recovered/Resolved]
  - Eye irritation [Recovered/Resolved]
  - Hyperhidrosis [Recovered/Resolved]
  - Hallucination, visual [Recovered/Resolved]
  - Visual field defect [Recovered/Resolved]
  - Drug interaction [Recovered/Resolved]
